FAERS Safety Report 6107125-3 (Version None)
Quarter: 2009Q1

REPORT INFORMATION
  Report Type: 
  Country: None (occurrence: None)
  Receive Date: 20090309
  Receipt Date: 20090302
  Transmission Date: 20090719
  Serious: Yes (Death)
  Sender: FDA-Public Use
  Company Number: PHBS2009IT01000

PATIENT
  Age: 56 Year
  Sex: Male

DRUGS (4)
  1. ZOLEDRONIC ACID [Suspect]
  2. EPOGEN [Concomitant]
  3. DEXAMETHASONE [Concomitant]
  4. THALIDOMIDE [Concomitant]
     Dosage: 100 MG/DAY

REACTIONS (11)
  - ACTIVATED PARTIAL THROMBOPLASTIN TIME PROLONGED [None]
  - ANTITHROMBIN III DECREASED [None]
  - BLOOD FIBRINOGEN DECREASED [None]
  - DISSEMINATED INTRAVASCULAR COAGULATION [None]
  - HAEMORRHAGE [None]
  - NEUROLOGICAL DECOMPENSATION [None]
  - PERFORMANCE STATUS DECREASED [None]
  - PLATELET COUNT DECREASED [None]
  - PROTHROMBIN TIME PROLONGED [None]
  - PURPURA [None]
  - RENAL IMPAIRMENT [None]
